FAERS Safety Report 14686313 (Version 1)
Quarter: 2018Q1

REPORT INFORMATION
  Report Type: Spontaneous
  Country: BG (occurrence: BG)
  Receive Date: 20180327
  Receipt Date: 20180327
  Transmission Date: 20180509
  Serious: Yes (Hospitalization)
  Sender: FDA-Public Use
  Company Number: BG-BAYER-2018-053078

PATIENT
  Age: 87 Year
  Sex: Male

DRUGS (10)
  1. CLOPIDOGREL [Interacting]
     Active Substance: CLOPIDOGREL BISULFATE
     Indication: ACUTE MYOCARDIAL INFARCTION
     Dosage: 600 MG, UNK
     Dates: start: 201801
  2. BISOPROLOL 1A PHARMA [Concomitant]
     Active Substance: BISOPROLOL
     Dosage: 2.5 MG, UNK
  3. PANTOPRAZOLE [Concomitant]
     Active Substance: PANTOPRAZOLE
     Dosage: 20 MG, BID
  4. ATORVASTATIN [Concomitant]
     Active Substance: ATORVASTATIN
     Dosage: 40 MG, UNK
     Dates: start: 201801
  5. ASPIRIN PROTECT 100 MG [Interacting]
     Active Substance: ASPIRIN
     Indication: ACUTE MYOCARDIAL INFARCTION
     Dosage: 100 MG, UNK
     Route: 048
     Dates: start: 20180130
  6. CLOPIDOGREL [Interacting]
     Active Substance: CLOPIDOGREL BISULFATE
     Indication: ACUTE MYOCARDIAL INFARCTION
     Dosage: 75 MG, UNK
     Dates: start: 20180130
  7. HEPARIN [Interacting]
     Active Substance: HEPARIN SODIUM
     Indication: ACUTE MYOCARDIAL INFARCTION
     Dosage: 800 DF, UNK 800UI/H
     Route: 042
  8. ASPIRIN PROTECT 100 MG [Suspect]
     Active Substance: ASPIRIN
     Indication: ACUTE MYOCARDIAL INFARCTION
     Dosage: 300 MG, UNK
     Route: 048
     Dates: start: 201801
  9. ATORVASTATIN [Concomitant]
     Active Substance: ATORVASTATIN
     Dosage: 40 MG, UNK
     Dates: start: 20180130
  10. ZOFENOPRIL [Concomitant]
     Active Substance: ZOFENOPRIL
     Dosage: 7.5 MG, UNK

REACTIONS (10)
  - Urinary tract infection enterococcal [None]
  - Haematuria [None]
  - Drug administration error [None]
  - Post procedural haemorrhage [None]
  - Hemiparesis [None]
  - Delirium [None]
  - Labelled drug-drug interaction medication error [None]
  - Cerebrovascular accident [None]
  - Transient ischaemic attack [None]
  - Bladder diverticulum [None]

NARRATIVE: CASE EVENT DATE: 201801
